FAERS Safety Report 22021670 (Version 2)
Quarter: 2023Q2

REPORT INFORMATION
  Report Type: Spontaneous
  Country: US (occurrence: US)
  Receive Date: 20230222
  Receipt Date: 20230530
  Transmission Date: 20230722
  Serious: No
  Sender: FDA-Public Use
  Company Number: US-APELLIS PHARMACEUTICALS-APL-2023-001963

PATIENT
  Sex: Female

DRUGS (1)
  1. EMPAVELI [Suspect]
     Active Substance: PEGCETACOPLAN
     Indication: Paroxysmal nocturnal haemoglobinuria
     Dosage: THREE TIMES WEEKLY
     Route: 058

REACTIONS (4)
  - Blood lactate dehydrogenase abnormal [Recovering/Resolving]
  - Administration site nodule [Unknown]
  - Fatigue [Unknown]
  - Wrong technique in product usage process [Unknown]
